FAERS Safety Report 8492596-8 (Version None)
Quarter: 2012Q3

REPORT INFORMATION
  Report Type: 
  Country: None (occurrence: None)
  Receive Date: 20120706
  Receipt Date: 20120625
  Transmission Date: 20120928
  Serious: Yes (Hospitalization)
  Sender: FDA-Public Use
  Company Number: FR-ELI_LILLY_AND_COMPANY-FR201206004150

PATIENT
  Age: 45 Year
  Sex: Female

DRUGS (3)
  1. CYMBALTA [Suspect]
     Dosage: 60 MG, QD
     Dates: start: 20120601
  2. CYMBALTA [Suspect]
     Dosage: 30 MG, QD
     Dates: start: 20120601
  3. CYMBALTA [Suspect]
     Dosage: 60 MG, QD
     Dates: end: 20120601

REACTIONS (12)
  - DECREASED APPETITE [None]
  - ASTHENIA [None]
  - GENERAL PHYSICAL HEALTH DETERIORATION [None]
  - HEPATIC PAIN [None]
  - INSOMNIA [None]
  - HEPATITIS [None]
  - WEIGHT DECREASED [None]
  - DEPRESSED MOOD [None]
  - OFF LABEL USE [None]
  - VOMITING [None]
  - LIVER INJURY [None]
  - HAEMATURIA [None]
